FAERS Safety Report 4642101-9 (Version None)
Quarter: 2005Q2

REPORT INFORMATION
  Report Type: 
  Country: None (occurrence: None)
  Receive Date: 20050420
  Receipt Date: 20050408
  Transmission Date: 20051028
  Serious: Yes (Hospitalization)
  Sender: FDA-Public Use
  Company Number: 2005AP02243

PATIENT
  Age: 77 Year
  Sex: Male

DRUGS (2)
  1. IRESSA [Suspect]
     Indication: NON-SMALL CELL LUNG CANCER
     Dosage: 250 MG DAILY PO
     Route: 048
     Dates: start: 20050214, end: 20050321
  2. GASTER [Suspect]
     Dosage: 250 MG DAILY PO
     Route: 048
     Dates: start: 20050214, end: 20050321

REACTIONS (3)
  - INTERSTITIAL LUNG DISEASE [None]
  - METASTASES TO BONE [None]
  - PLATELET COUNT DECREASED [None]
